FAERS Safety Report 13987840 (Version 11)
Quarter: 2019Q3

REPORT INFORMATION
  Report Type: Report from Study
  Country: None (occurrence: NL)
  Receive Date: 20170919
  Receipt Date: 20190820
  Transmission Date: 20191004
  Serious: Yes (Hospitalization, Other)
  Sender: FDA-Public Use
  Company Number: NL-ABBVIE-17K-114-2096323-00

PATIENT
  Age: 74 Year
  Sex: Female
  Weight: 42.1 kg

DRUGS (5)
  1. DUODOPA [Suspect]
     Active Substance: CARBIDOPA\LEVODOPA
     Dosage: MD: 16.0, ED: 4.0, CD: 4.7
     Route: 050
  2. DUODOPA [Suspect]
     Active Substance: CARBIDOPA\LEVODOPA
     Route: 050
  3. DUODOPA [Suspect]
     Active Substance: CARBIDOPA\LEVODOPA
     Indication: PARKINSON^S DISEASE
     Dosage: MD: 16, CD: 4.3, ED: 4
     Route: 050
     Dates: start: 20170821
  4. MOVICOLON [Concomitant]
     Active Substance: POLYETHYLENE GLYCOL 3350\POTASSIUM CHLORIDE\SODIUM BICARBONATE\SODIUM CHLORIDE
     Indication: PRODUCT USED FOR UNKNOWN INDICATION
     Route: 065
  5. BISACODYL. [Concomitant]
     Active Substance: BISACODYL
     Indication: PRODUCT USED FOR UNKNOWN INDICATION

REACTIONS (30)
  - Dysstasia [Recovered/Resolved]
  - Urinary tract infection [Unknown]
  - Gait disturbance [Not Recovered/Not Resolved]
  - Fall [Recovered/Resolved]
  - Mobility decreased [Not Recovered/Not Resolved]
  - Muscle twitching [Recovered/Resolved]
  - General physical health deterioration [Not Recovered/Not Resolved]
  - Memory impairment [Not Recovered/Not Resolved]
  - Musculoskeletal stiffness [Not Recovered/Not Resolved]
  - Abnormal dreams [Not Recovered/Not Resolved]
  - On and off phenomenon [Not Recovered/Not Resolved]
  - Nasopharyngitis [Not Recovered/Not Resolved]
  - Hallucination [Recovering/Resolving]
  - Constipation [Not Recovered/Not Resolved]
  - Device dislocation [Unknown]
  - Fall [Recovered/Resolved]
  - Decreased appetite [Recovered/Resolved]
  - Musculoskeletal stiffness [Recovered/Resolved]
  - Pain in extremity [Recovered/Resolved]
  - Cognitive disorder [Not Recovered/Not Resolved]
  - Screaming [Not Recovered/Not Resolved]
  - Vitamin B6 deficiency [Not Recovered/Not Resolved]
  - Seizure [Not Recovered/Not Resolved]
  - Weight decreased [Not Recovered/Not Resolved]
  - Orthostatic hypotension [Unknown]
  - Initial insomnia [Recovering/Resolving]
  - Hallucination, visual [Recovering/Resolving]
  - Device kink [Not Recovered/Not Resolved]
  - Influenza [Not Recovered/Not Resolved]
  - Therapeutic product effect incomplete [Not Recovered/Not Resolved]

NARRATIVE: CASE EVENT DATE: 2017
